FAERS Safety Report 8926734 (Version 6)
Quarter: 2014Q1

REPORT INFORMATION
  Report Type: Report from Study
  Country: JP (occurrence: JP)
  Receive Date: 20121127
  Receipt Date: 20140320
  Transmission Date: 20141002
  Serious: Yes (Life-Threatening)
  Sender: FDA-Public Use
  Company Number: JP-PFIZER INC-2012295108

PATIENT
  Age: 74 Year
  Sex: Male
  Weight: 54.6 kg

DRUGS (5)
  1. XALKORI [Suspect]
     Indication: NON-SMALL CELL LUNG CANCER
     Dosage: 250 MG, 2X/DAY
     Route: 048
     Dates: start: 20121023, end: 20121110
  2. TAKEPRON OD [Concomitant]
     Dosage: 15 MG, 1X/DAY
     Route: 048
     Dates: start: 201111
  3. HARNAL [Concomitant]
     Dosage: 0.1 MG, 2X/DAY
     Route: 048
  4. AVOLVE [Concomitant]
     Dosage: 0.5 MG, 1X/DAY
     Route: 048
  5. BISOLVON [Concomitant]
     Dosage: 2 ML, 4X/DAY
     Route: 055
     Dates: start: 20121030

REACTIONS (1)
  - Interstitial lung disease [Recovering/Resolving]
